FAERS Safety Report 5374513-2 (Version None)
Quarter: 2007Q2

REPORT INFORMATION
  Report Type: 
  Country: None (occurrence: None)
  Receive Date: 20070627
  Receipt Date: 20061010
  Transmission Date: 20071010
  Serious: Yes (Hospitalization)
  Sender: FDA-Public Use
  Company Number: 442728

PATIENT
  Age: 41 Year
  Sex: Female

DRUGS (4)
  1. XELODA [Suspect]
     Indication: BREAST CANCER
     Dosage: 2000 MG 2 PER DAY
     Dates: start: 20050523
  2. DIOVAN [Concomitant]
  3. VIT B6 (PYRIDOXINE HYDROCHLORIDE) [Concomitant]
  4. ASPIRIN [Concomitant]

REACTIONS (2)
  - DEEP VEIN THROMBOSIS [None]
  - PULMONARY EMBOLISM [None]
